FAERS Safety Report 7178884-6 (Version None)
Quarter: 2010Q4

REPORT INFORMATION
  Report Type: 
  Country: None (occurrence: None)
  Receive Date: 20101217
  Receipt Date: 20101217
  Transmission Date: 20110411
  Serious: Yes (Disabling)
  Sender: FDA-Public Use
  Company Number: None

PATIENT
  Age: 71 Year
  Sex: Female

DRUGS (7)
  1. LEXISCAN [Suspect]
     Indication: CARDIAC STRESS TEST
     Dosage: 0.4MG ONCE IV BOLUS
     Route: 040
     Dates: start: 20101209, end: 20101209
  2. PLAVIX [Concomitant]
  3. METOPROLOL [Concomitant]
  4. SINGULAIR [Concomitant]
  5. SEROQUEL [Concomitant]
  6. ZOLOFT [Concomitant]
  7. PERCOCET [Concomitant]

REACTIONS (2)
  - DYSPNOEA [None]
  - WHEEZING [None]
